FAERS Safety Report 23842986 (Version 2)
Quarter: 2024Q2

REPORT INFORMATION
  Report Type: Spontaneous
  Country: US (occurrence: US)
  Receive Date: 20240510
  Receipt Date: 20240620
  Transmission Date: 20240716
  Serious: No
  Sender: FDA-Public Use
  Company Number: US-LUPIN PHARMACEUTICALS INC.-2024-03810

PATIENT

DRUGS (1)
  1. TIOTROPIUM BROMIDE [Suspect]
     Active Substance: TIOTROPIUM BROMIDE
     Indication: Chronic obstructive pulmonary disease
     Dosage: 1 DOSAGE FORM, QD
     Dates: start: 20240417

REACTIONS (7)
  - Drug dose omission by device [Unknown]
  - Therapeutic product ineffective [Unknown]
  - Incorrect dose administered by device [Unknown]
  - Device difficult to use [Unknown]
  - Device delivery system issue [Unknown]
  - Product substitution issue [Unknown]
  - Device issue [Unknown]

NARRATIVE: CASE EVENT DATE: 20240401
